FAERS Safety Report 15392628 (Version 1)
Quarter: 2018Q4

REPORT INFORMATION
  Report Type: Spontaneous
  Country: CA (occurrence: CA)
  Receive Date: 20180917
  Receipt Date: 20180917
  Transmission Date: 20190204
  Serious: Yes (Other)
  Sender: FDA-Public Use
  Company Number: CA-TEVA-2018-CA-952441

PATIENT
  Sex: Female

DRUGS (2)
  1. CO PRAMIPEXOLE [Suspect]
     Active Substance: PRAMIPEXOLE
     Indication: RESTLESS LEGS SYNDROME
     Route: 065
  2. TEVA PRAMIPEXOLE [Suspect]
     Active Substance: PRAMIPEXOLE
     Indication: RESTLESS LEGS SYNDROME
     Route: 065
     Dates: start: 201206, end: 201301

REACTIONS (6)
  - Depression [Unknown]
  - Chest pain [Unknown]
  - Suicidal ideation [Unknown]
  - Disturbance in attention [Unknown]
  - Gambling [Unknown]
  - Stress [Not Recovered/Not Resolved]
